FAERS Safety Report 4371450-7 (Version None)
Quarter: 2004Q2

REPORT INFORMATION
  Report Type: 
  Country: None (occurrence: None)
  Receive Date: 20040602
  Receipt Date: 20040521
  Transmission Date: 20050107
  Serious: Yes (Hospitalization, Other)
  Sender: FDA-Public Use
  Company Number: US-JNJFOC-20040505215

PATIENT
  Age: 43 Year
  Sex: Female
  Weight: 60.782 kg

DRUGS (10)
  1. INFLIXIMAB (INFLIXIMAB, RECOMBINANT) LYOPHILIZED POWDER [Suspect]
     Indication: RHEUMATOID ARTHRITIS
     Dosage: INTRAVENOUS
     Route: 042
     Dates: start: 20010813
  2. PREDNISONE [Concomitant]
  3. DILTIAZEM [Concomitant]
  4. FOLIC ACID [Concomitant]
  5. ALBUTEROL [Concomitant]
  6. HYDROXYUREA [Concomitant]
  7. HYDROCODONE [Concomitant]
  8. WARFARIN SODIUM [Concomitant]
  9. ADVAIR (SERETIDE MITE) [Concomitant]
  10. ACTONEL (RISEDRONATE SODIUIM) [Concomitant]

REACTIONS (1)
  - SICKLE CELL ANAEMIA WITH CRISIS [None]
